FAERS Safety Report 6656300-8 (Version None)
Quarter: 2010Q1

REPORT INFORMATION
  Report Type: 
  Country: None (occurrence: None)
  Receive Date: 20100317
  Receipt Date: 20091116
  Transmission Date: 20100710
  Serious: No
  Sender: FDA-Public Use
  Company Number: DSA_42026_2009

PATIENT
  Sex: Male

DRUGS (1)
  1. XENAZINE [Suspect]
     Indication: HUNTINGTON'S CHOREA
     Dosage: (25 MG BID ORAL)
     Route: 048
     Dates: start: 20090722, end: 20090101

REACTIONS (2)
  - CONFUSIONAL STATE [None]
  - LETHARGY [None]
